FAERS Safety Report 23338359 (Version 1)
Quarter: 2023Q4

REPORT INFORMATION
  Report Type: Other
  Country: US (occurrence: None)
  Receive Date: 20231226
  Receipt Date: 20231226
  Transmission Date: 20240109
  Serious: Yes (Other)
  Sender: FDA-Public Use
  Company Number: US-ROCHE-3480573

PATIENT
  Age: 73 Year
  Sex: Male

DRUGS (2)
  1. ROZLYTREK [Suspect]
     Active Substance: ENTRECTINIB
     Indication: Pancreatic carcinoma
     Dosage: TAKE 3 CAPSULE(S) BY MOUTH EVERY DAY IN THE MORNING
     Route: 048
  2. ROZLYTREK [Suspect]
     Active Substance: ENTRECTINIB
     Indication: Pancreatic carcinoma

REACTIONS (3)
  - Deafness [Unknown]
  - Nasopharyngitis [Unknown]
  - Off label use [Unknown]
